FAERS Safety Report 5147824-3 (Version None)
Quarter: 2006Q4

REPORT INFORMATION
  Report Type: 
  Country: None (occurrence: None)
  Receive Date: 20061110
  Receipt Date: 20061027
  Transmission Date: 20070319
  Serious: Yes (Hospitalization, Other)
  Sender: FDA-Public Use
  Company Number: PHBS2006DK16997

PATIENT
  Age: 55 Year
  Sex: Female

DRUGS (9)
  1. ZOMETA [Suspect]
     Indication: METASTASES TO BONE
     Dosage: 4 MG, EVERY THREE WEEKS
     Route: 042
     Dates: start: 20041021, end: 20050518
  2. ZOMETA [Suspect]
     Route: 042
     Dates: start: 20050923, end: 20051007
  3. OXYCONTIN [Concomitant]
     Route: 048
  4. AKARIN [Concomitant]
     Dosage: 20 MG/D
     Route: 048
  5. TOLVON [Concomitant]
     Dosage: 30 MG/D
     Route: 048
  6. FORTAMOL [Concomitant]
     Route: 065
  7. CHEMOTHERAPEUTICS,OTHER [Concomitant]
     Route: 065
     Dates: start: 20060101
  8. CHEMOTHERAPEUTICS,OTHER [Concomitant]
     Dosage: UNK, 12 TIMES
     Route: 065
     Dates: start: 20040901, end: 20050519
  9. RADIOTHERAPY [Concomitant]
     Dosage: UNK, 10 TIMES
     Route: 065
     Dates: start: 20050101

REACTIONS (23)
  - ABSCESS JAW [None]
  - BONE DISORDER [None]
  - BONE TRIMMING [None]
  - DENTAL PROSTHESIS PLACEMENT [None]
  - DRY MOUTH [None]
  - EATING DISORDER [None]
  - EXCESSIVE GRANULATION TISSUE [None]
  - FISTULA [None]
  - IMPAIRED HEALING [None]
  - INFECTION [None]
  - JAW DISORDER [None]
  - MASTICATION DISORDER [None]
  - METASTASES TO BONE [None]
  - OSTEONECROSIS [None]
  - PAIN IN JAW [None]
  - PERIODONTITIS [None]
  - PRIMARY SEQUESTRUM [None]
  - PYREXIA [None]
  - SWELLING [None]
  - TOOTH DISORDER [None]
  - TOOTH EXTRACTION [None]
  - TRISMUS [None]
  - WOUND DEHISCENCE [None]
